FAERS Safety Report 25268200 (Version 1)
Quarter: 2025Q2

REPORT INFORMATION
  Report Type: Spontaneous
  Country: US (occurrence: None)
  Receive Date: 20250503
  Receipt Date: 20250503
  Transmission Date: 20250717
  Serious: Yes (Disabling)
  Sender: FDA-CTU
  Company Number: None

PATIENT
  Age: 48 Year
  Sex: Female
  Weight: 76.95 kg

DRUGS (1)
  1. LEVAQUIN [Suspect]
     Active Substance: LEVOFLOXACIN
     Indication: Infection
     Dates: start: 20230410, end: 20230413

REACTIONS (4)
  - Muscular weakness [None]
  - Neuropathy peripheral [None]
  - Feeling abnormal [None]
  - Hypotonia [None]

NARRATIVE: CASE EVENT DATE: 20230410
